FAERS Safety Report 16135272 (Version 3)
Quarter: 2019Q2

REPORT INFORMATION
  Report Type: Spontaneous
  Country: US (occurrence: US)
  Receive Date: 20190329
  Receipt Date: 20190521
  Transmission Date: 20190711
  Serious: No
  Sender: FDA-Public Use
  Company Number: US-SA-2019SA027432

PATIENT
  Sex: Male

DRUGS (1)
  1. APIDRA [Suspect]
     Active Substance: INSULIN GLULISINE
     Dosage: 24U, 30U, 30U
     Route: 065

REACTIONS (5)
  - Hypoacusis [Unknown]
  - Sleep disorder [Unknown]
  - Burning sensation [Unknown]
  - Blood glucose increased [Unknown]
  - Inability to afford medication [Unknown]
